FAERS Safety Report 25114698 (Version 2)
Quarter: 2025Q2

REPORT INFORMATION
  Report Type: Report from Study
  Country: US (occurrence: US)
  Receive Date: 20250324
  Receipt Date: 20250407
  Transmission Date: 20250717
  Serious: Yes (Other)
  Sender: UCB
  Company Number: US-UCBSA-2025017117

PATIENT
  Sex: Male
  Weight: 59 kg

DRUGS (2)
  1. FINTEPLA [Suspect]
     Active Substance: FENFLURAMINE
     Indication: Lennox-Gastaut syndrome
     Dosage: 5.3 MILLILITER, 2X/DAY (BID)
     Dates: start: 20231113
  2. FINTEPLA [Suspect]
     Active Substance: FENFLURAMINE
     Dosage: 5.3 MILLILITER, 2X/DAY (BID)
     Dates: start: 20240119

REACTIONS (2)
  - Seizure [Not Recovered/Not Resolved]
  - Drug ineffective [Unknown]
